FAERS Safety Report 21394689 (Version 1)
Quarter: 2022Q3

REPORT INFORMATION
  Report Type: Spontaneous
  Country: DE (occurrence: DE)
  Receive Date: 20220930
  Receipt Date: 20220930
  Transmission Date: 20221026
  Serious: Yes (Hospitalization, Other)
  Sender: FDA-Public Use
  Company Number: DE-MLMSERVICE-20220915-3786548-1

PATIENT
  Age: 13 Year
  Sex: Female

DRUGS (3)
  1. METHOTREXATE [Interacting]
     Active Substance: METHOTREXATE
     Indication: Acute lymphocytic leukaemia
     Dosage: 500 MG/M^2 IN THE PERFUSOR OVER 30 MINUTES (TEST DOSE FOR TOLERABILITY TESTING) AND THEN
  2. SULFAMETHOXAZOLE\TRIMETHOPRIM [Interacting]
     Active Substance: SULFAMETHOXAZOLE\TRIMETHOPRIM
     Indication: Pyelonephritis acute
     Dosage: CONTINUOUSLY OVER 90 MINUTES
     Route: 042
  3. METHOTREXATE [Interacting]
     Active Substance: METHOTREXATE
     Indication: Acute lymphocytic leukaemia
     Dosage: 4,500 MG/M2 IN THE BAG AS A CONTINUOUS INFUSION OVER 23.5 HOURS

REACTIONS (5)
  - Renal impairment [Unknown]
  - Drug interaction [Unknown]
  - Drug clearance decreased [Unknown]
  - Mucosal inflammation [Recovering/Resolving]
  - Drug level increased [Unknown]
